FAERS Safety Report 7755346-6 (Version None)
Quarter: 2011Q3

REPORT INFORMATION
  Report Type: 
  Country: None (occurrence: None)
  Receive Date: 20110913
  Receipt Date: 20110908
  Transmission Date: 20111222
  Serious: Yes (Other)
  Sender: FDA-Public Use
  Company Number: A0943862A

PATIENT
  Age: 88 Year
  Sex: Female

DRUGS (1)
  1. ASPIRIN + CAFFEINE + SALICYLAMIDE (FORMULATION UNKNOWN) (ASPIRIN+CAFFE [Suspect]
     Dosage: ORAL
     Route: 048

REACTIONS (5)
  - BLOOD DISORDER [None]
  - DRUG ADMINISTRATION ERROR [None]
  - INCREASED TENDENCY TO BRUISE [None]
  - THERAPEUTIC RESPONSE UNEXPECTED [None]
  - CONTUSION [None]
